FAERS Safety Report 24531102 (Version 4)
Quarter: 2025Q1

REPORT INFORMATION
  Report Type: Spontaneous
  Country: US (occurrence: US)
  Receive Date: 20241022
  Receipt Date: 20250314
  Transmission Date: 20250408
  Serious: Yes (Hospitalization, Other)
  Sender: UCB
  Company Number: US-UCBSA-2024053164

PATIENT
  Sex: Female

DRUGS (1)
  1. CIMZIA [Suspect]
     Active Substance: CERTOLIZUMAB PEGOL
     Indication: Crohn^s disease
     Dosage: 400 MILLIGRAM, EV 4 WEEKS
     Route: 058
     Dates: start: 202401

REACTIONS (6)
  - Road traffic accident [Unknown]
  - Multiple fractures [Unknown]
  - Injury [Unknown]
  - Crohn^s disease [Recovering/Resolving]
  - Ileostomy [Recovering/Resolving]
  - Stoma prolapse [Recovering/Resolving]

NARRATIVE: CASE EVENT DATE: 20240101
